FAERS Safety Report 5394689-0 (Version None)
Quarter: 2007Q3

REPORT INFORMATION
  Report Type: 
  Country: None (occurrence: None)
  Receive Date: 20070720
  Receipt Date: 20070626
  Transmission Date: 20080115
  Serious: Yes (Other)
  Sender: FDA-Public Use
  Company Number: 2007SP013453

PATIENT
  Age: 63 Year
  Sex: Male

DRUGS (12)
  1. MIRALAX [Suspect]
     Indication: CONSTIPATION
     Dosage: 17 GM; BID; PO
     Route: 048
     Dates: start: 20030101, end: 20070101
  2. ZETIA [Concomitant]
  3. DARVOCET [Concomitant]
  4. COREG [Concomitant]
  5. WARIFIN [Concomitant]
  6. LIPITOR [Concomitant]
  7. TRICOR [Concomitant]
  8. METFORMIN HCL [Concomitant]
  9. VALIUM [Concomitant]
  10. PREVACID [Concomitant]
  11. LISINOPRIL [Concomitant]
  12. BENTYL [Concomitant]

REACTIONS (2)
  - DRUG INEFFECTIVE [None]
  - OVERDOSE [None]
